FAERS Safety Report 5501639-2 (Version None)
Quarter: 2007Q4

REPORT INFORMATION
  Report Type: 
  Country: None (occurrence: None)
  Receive Date: 20071030
  Receipt Date: 20071018
  Transmission Date: 20080405
  Serious: Yes (Other)
  Sender: FDA-Public Use
  Company Number: US-ELI_LILLY_AND_COMPANY-US200710004805

PATIENT
  Sex: Female

DRUGS (5)
  1. FORTEO [Suspect]
     Dosage: UNK, UNK
     Dates: start: 20071004
  2. PHENOBARBITAL TAB [Concomitant]
  3. LOVENOX [Concomitant]
  4. OXYCODONE HCL [Concomitant]
  5. FIORICET [Concomitant]

REACTIONS (4)
  - DIZZINESS [None]
  - DYSARTHRIA [None]
  - HEADACHE [None]
  - NEUROLOGICAL SYMPTOM [None]
